FAERS Safety Report 4601719-X (Version None)
Quarter: 2005Q1

REPORT INFORMATION
  Report Type: 
  Country: None (occurrence: None)
  Receive Date: 20050128
  Receipt Date: 20040930
  Transmission Date: 20050727
  Serious: No
  Sender: FDA-Public Use
  Company Number: WAES 0410USA00030

PATIENT
  Age: 52 Year
  Sex: Female

DRUGS (3)
  1. EMEND [Suspect]
     Indication: POST PROCEDURAL NAUSEA
     Dosage: 80 MG/PO; 125 MG/PO
     Route: 048
     Dates: start: 20040501, end: 20040501
  2. EMEND [Suspect]
     Indication: POST PROCEDURAL NAUSEA
     Dosage: 80 MG/PO; 125 MG/PO
     Route: 048
     Dates: start: 20040501, end: 20040501
  3. ERBITUX [Concomitant]

REACTIONS (1)
  - DRUG INEFFECTIVE [None]
